FAERS Safety Report 19887872 (Version 1)
Quarter: 2021Q3

REPORT INFORMATION
  Report Type: Spontaneous
  Country: US (occurrence: US)
  Receive Date: 20210928
  Receipt Date: 20210928
  Transmission Date: 20211014
  Serious: No
  Sender: FDA-Public Use
  Company Number: US-HIKMA PHARMACEUTICALS USA INC.-US-H14001-20-05296

PATIENT
  Age: 86 Year
  Sex: Female

DRUGS (1)
  1. DEXAMETHASONE. [Suspect]
     Active Substance: DEXAMETHASONE
     Indication: LICHEN PLANUS
     Dosage: ONE TEASPOON
     Route: 048
     Dates: start: 20201105

REACTIONS (1)
  - Oral discomfort [Not Recovered/Not Resolved]
